FAERS Safety Report 9594363 (Version 1)
Quarter: 2013Q4

REPORT INFORMATION
  Report Type: Spontaneous
  Country: US (occurrence: US)
  Receive Date: 20131004
  Receipt Date: 20131004
  Transmission Date: 20140711
  Serious: Yes (Other)
  Sender: FDA-Public Use
  Company Number: US-BAYER-2013-119945

PATIENT
  Sex: Female

DRUGS (10)
  1. BAYER GENUINE ASPIRIN ORIGINAL STRENGTH [Suspect]
  2. XANAX [Suspect]
  3. LIPITOR [Suspect]
  4. LISINOPRIL [Suspect]
  5. MAGNESIUM [Suspect]
  6. METOPROLOL TARTRATE [Suspect]
  7. TORADOL [Suspect]
  8. CYCLOBENZAPRINE [Suspect]
  9. PHENYTOIN SODIUM [Suspect]
  10. LORTAB [Suspect]

REACTIONS (5)
  - Convulsion [None]
  - Memory impairment [None]
  - Diarrhoea [None]
  - Drug level decreased [None]
  - Drug ineffective [None]
